FAERS Safety Report 11197889 (Version 2)
Quarter: 2015Q3

REPORT INFORMATION
  Report Type: Spontaneous
  Country: JP (occurrence: JP)
  Receive Date: 20150617
  Receipt Date: 20150713
  Transmission Date: 20151125
  Serious: Yes (Other)
  Sender: FDA-Public Use
  Company Number: PHJP2015JP009234

PATIENT
  Age: 78 Year
  Sex: Male

DRUGS (1)
  1. ZOLEDRONIC ACID [Suspect]
     Active Substance: ZOLEDRONIC ACID
     Indication: METASTASES TO BONE
     Route: 042
     Dates: start: 201104

REACTIONS (4)
  - Purulent discharge [Unknown]
  - Osteonecrosis of jaw [Unknown]
  - Fistula [Unknown]
  - Pain in jaw [Unknown]

NARRATIVE: CASE EVENT DATE: 201207
